FAERS Safety Report 10363101 (Version 1)
Quarter: 2014Q3

REPORT INFORMATION
  Report Type: Spontaneous
  Country: US (occurrence: US)
  Receive Date: 20140805
  Receipt Date: 20140805
  Transmission Date: 20150326
  Serious: Yes (Other)
  Sender: FDA-Public Use
  Company Number: US-ELI_LILLY_AND_COMPANY-US201407009035

PATIENT
  Sex: Male

DRUGS (5)
  1. PERCOCET [Concomitant]
     Active Substance: ACETAMINOPHEN\OXYCODONE HYDROCHLORIDE
     Indication: PAIN IN EXTREMITY
     Dosage: UNK, UNKNOWN
     Route: 065
  2. ACETAMINOPHEN. [Concomitant]
     Active Substance: ACETAMINOPHEN
     Indication: PAIN IN EXTREMITY
     Dosage: 325 MG, TID
     Route: 065
  3. IBUPROFEN. [Concomitant]
     Active Substance: IBUPROFEN
     Indication: PAIN IN EXTREMITY
     Dosage: UNK, QD
     Route: 065
  4. CYMBALTA [Suspect]
     Active Substance: DULOXETINE HYDROCHLORIDE
     Indication: PAIN IN EXTREMITY
     Dosage: 30 MG, TID
     Route: 048
     Dates: start: 2011
  5. ACETAMINOPHEN. [Concomitant]
     Active Substance: ACETAMINOPHEN
     Dosage: 650 MG, QD
     Route: 065

REACTIONS (8)
  - Myalgia [Recovering/Resolving]
  - Drug ineffective [Unknown]
  - Suicidal ideation [Unknown]
  - Sciatica [Recovering/Resolving]
  - Joint instability [Recovering/Resolving]
  - Renal failure acute [Recovered/Resolved]
  - Muscle spasms [Not Recovered/Not Resolved]
  - Musculoskeletal pain [Recovering/Resolving]
